FAERS Safety Report 9949878 (Version 1)
Quarter: 2014Q1

REPORT INFORMATION
  Report Type: Report from Study
  Country: US (occurrence: US)
  Receive Date: 20140304
  Receipt Date: 20140304
  Transmission Date: 20141002
  Serious: No
  Sender: FDA-Public Use
  Company Number: US-ABBVIE-13P-163-1065418-00

PATIENT
  Age: 41 Year
  Sex: Male

DRUGS (11)
  1. HUMIRA [Suspect]
     Indication: CROHN^S DISEASE
     Dates: start: 201210
  2. HUMIRA [Suspect]
     Route: 058
     Dates: start: 20130220
  3. TOPROL XL [Concomitant]
     Indication: HYPERTENSION
  4. COZAAR [Concomitant]
     Indication: HYPERTENSION
     Dosage: 100MG DAILY
  5. TRILIPIX [Concomitant]
     Indication: BLOOD CHOLESTEROL
     Dosage: 135MG DAILY
  6. TRILIPIX [Concomitant]
     Indication: BLOOD TRIGLYCERIDES
  7. ULORIC [Concomitant]
     Indication: BLOOD URIC ACID
     Dosage: 40MG DAILY
  8. DEXILANT [Concomitant]
     Indication: GASTROOESOPHAGEAL REFLUX DISEASE
     Dosage: 60MG DAILY
  9. ZOCOR [Concomitant]
     Indication: BLOOD CHOLESTEROL
     Dosage: 20MG DAILY
  10. ZOFRAN [Concomitant]
     Indication: NAUSEA
  11. NORCO [Concomitant]
     Indication: ARTHRALGIA
     Dosage: 10/325MG AS NEEDED

REACTIONS (3)
  - Pharyngitis [Recovering/Resolving]
  - Arthralgia [Recovering/Resolving]
  - Abdominal pain [Recovering/Resolving]
